FAERS Safety Report 25049559 (Version 2)
Quarter: 2025Q1

REPORT INFORMATION
  Report Type: Spontaneous
  Country: US (occurrence: US)
  Receive Date: 20250307
  Receipt Date: 20250312
  Transmission Date: 20250408
  Serious: Yes (Hospitalization, Other)
  Sender: SANOFI AVENTIS
  Company Number: US-SA-2025SA065480

PATIENT
  Age: 76 Year
  Sex: Female

DRUGS (7)
  1. DUPIXENT [Suspect]
     Active Substance: DUPILUMAB
     Indication: Dermatitis atopic
     Dosage: 300 MG, QOW
     Route: 058
     Dates: start: 20240509
  2. BIOTIN [Concomitant]
     Active Substance: BIOTIN
  3. VALTREX [Concomitant]
     Active Substance: VALACYCLOVIR HYDROCHLORIDE
  4. SUCRALFATE [Concomitant]
     Active Substance: SUCRALFATE
  5. VITAMIN D [Concomitant]
     Active Substance: VITAMIN D NOS
  6. PHOSLYRA [Concomitant]
     Active Substance: CALCIUM ACETATE
  7. FAMOTIDINE [Concomitant]
     Active Substance: FAMOTIDINE

REACTIONS (1)
  - Cerebrovascular accident [Recovering/Resolving]
